FAERS Safety Report 6092753-4 (Version None)
Quarter: 2009Q1

REPORT INFORMATION
  Report Type: 
  Country: None (occurrence: None)
  Receive Date: 20090225
  Receipt Date: 20090220
  Transmission Date: 20090719
  Serious: Yes (Other)
  Sender: FDA-Public Use
  Company Number: US-JNJFOC-20090205729

PATIENT
  Sex: Female
  Weight: 57.61 kg

DRUGS (5)
  1. DURAGESIC-100 [Suspect]
     Dosage: 2 100 UG/HR PATCHES
     Route: 062
  2. DURAGESIC-100 [Suspect]
     Indication: RHEUMATOID ARTHRITIS
     Dosage: 2 100UG/HR PATCHES
     Route: 062
  3. PREDNISONE [Suspect]
     Indication: INFECTIOUS MONONUCLEOSIS
     Route: 048
     Dates: start: 20080601
  4. ESTRACE [Concomitant]
     Indication: HORMONE REPLACEMENT THERAPY
     Route: 048
  5. TYLENOL [Concomitant]
     Indication: PYREXIA
     Route: 048

REACTIONS (6)
  - DRUG DOSE OMISSION [None]
  - DRUG PRESCRIBING ERROR [None]
  - INAPPROPRIATE SCHEDULE OF DRUG ADMINISTRATION [None]
  - INFECTIOUS MONONUCLEOSIS [None]
  - PYREXIA [None]
  - WEIGHT INCREASED [None]
